FAERS Safety Report 8238927-5 (Version None)
Quarter: 2012Q1

REPORT INFORMATION
  Report Type: 
  Country: None (occurrence: None)
  Receive Date: 20120327
  Receipt Date: 20111205
  Transmission Date: 20120608
  Serious: Yes (Other)
  Sender: FDA-Public Use
  Company Number: IT-GILEAD-2011-0047837

PATIENT
  Age: 71 Year
  Sex: Male

DRUGS (11)
  1. ASPIRIN [Concomitant]
  2. ALLOPURINOL [Concomitant]
  3. RANOLAZINE [Suspect]
     Dosage: 500 MG, QD
  4. RANOLAZINE [Suspect]
     Dosage: 750 MG, QD
     Route: 048
  5. DOXAZOSIN MESYLATE [Concomitant]
  6. ATORVASTATIN [Concomitant]
  7. FUROSEMIDE [Concomitant]
  8. RANOLAZINE [Suspect]
     Indication: ANGINA PECTORIS
     Dosage: 375 MG, QD
  9. BISOPROLOL FUMARATE [Concomitant]
  10. GLYBURIDE [Concomitant]
  11. BETAMETHASONE [Concomitant]

REACTIONS (5)
  - MYOCARDIAL INFARCTION [None]
  - ABDOMINAL PAIN [None]
  - DECREASED APPETITE [None]
  - EPISTAXIS [None]
  - ASTHENIA [None]
